FAERS Safety Report 10156694 (Version 1)
Quarter: 2014Q2

REPORT INFORMATION
  Report Type: Spontaneous
  Country: US (occurrence: None)
  Receive Date: 20140506
  Receipt Date: 20140506
  Transmission Date: 20141212
  Serious: Yes (Life-Threatening, Hospitalization)
  Sender: FDA-Public Use
  Company Number: None

PATIENT
  Age: 20 Year
  Sex: Female
  Weight: 58.06 kg

DRUGS (4)
  1. SRONYX [Suspect]
     Indication: CONTRACEPTION
     Dosage: 28 TABLETS?ONCE DAILY?TAKEN BY MOUTH
     Route: 048
     Dates: start: 20140201, end: 20140423
  2. ASPIRIN [Suspect]
  3. CLOPIDOGREL [Concomitant]
  4. CAMOMILE TEA [Concomitant]

REACTIONS (2)
  - Somnolence [None]
  - Cerebrovascular accident [None]
